FAERS Safety Report 22226145 (Version 2)
Quarter: 2023Q2

REPORT INFORMATION
  Report Type: Spontaneous
  Country: IT (occurrence: IT)
  Receive Date: 20230419
  Receipt Date: 20230425
  Transmission Date: 20230722
  Serious: Yes (Hospitalization, Other)
  Sender: FDA-Public Use
  Company Number: IT-PFIZER INC-PV202300069372

PATIENT
  Age: 78 Year
  Sex: Male

DRUGS (1)
  1. INFLIXIMAB [Suspect]
     Active Substance: INFLIXIMAB
     Indication: Rheumatoid arthritis
     Dosage: 300 MG, CYCLIC (300 MG OGNI 8 SETTIMANE)
     Route: 042
     Dates: start: 20220725, end: 20230119

REACTIONS (5)
  - Facial paralysis [Recovered/Resolved]
  - Dysarthria [Recovered/Resolved]
  - Paraesthesia [Recovered/Resolved]
  - Language disorder [Recovered/Resolved]
  - Antinuclear antibody increased [Recovering/Resolving]

NARRATIVE: CASE EVENT DATE: 20230203
